FAERS Safety Report 6998859-7 (Version None)
Quarter: 2010Q3

REPORT INFORMATION
  Report Type: 
  Country: None (occurrence: None)
  Receive Date: 20100920
  Receipt Date: 20100205
  Transmission Date: 20110219
  Serious: No
  Sender: FDA-Public Use
  Company Number: US-ASTRAZENECA-2010SE05464

PATIENT
  Age: 75 Year
  Sex: Female
  Weight: 72.6 kg

DRUGS (3)
  1. SEROQUEL [Suspect]
     Indication: DEPRESSION
     Route: 048
  2. SEROQUEL [Suspect]
     Route: 048
     Dates: end: 20070101
  3. SEROQUEL [Suspect]
     Route: 048
     Dates: end: 20090101

REACTIONS (1)
  - HEARING IMPAIRED [None]
